FAERS Safety Report 9954093 (Version 1)
Quarter: 2014Q1

REPORT INFORMATION
  Report Type: Report from Study
  Country: US (occurrence: US)
  Receive Date: 20140304
  Receipt Date: 20140304
  Transmission Date: 20141002
  Serious: No
  Sender: FDA-Public Use
  Company Number: US-ABBVIE-13P-163-1079491-00

PATIENT
  Age: 32 Year
  Sex: Female

DRUGS (4)
  1. HUMIRA [Suspect]
     Indication: CROHN^S DISEASE
     Dates: start: 20120818
  2. PROTONIX [Concomitant]
     Indication: GASTROOESOPHAGEAL REFLUX DISEASE
  3. LEVSIN [Concomitant]
     Indication: ABDOMINAL PAIN
     Route: 060
  4. PHENERGAN [Concomitant]
     Indication: NAUSEA

REACTIONS (2)
  - Fungal infection [Not Recovered/Not Resolved]
  - Fungal infection [Not Recovered/Not Resolved]
